FAERS Safety Report 8536476-8 (Version None)
Quarter: 2012Q3

REPORT INFORMATION
  Report Type: 
  Country: None (occurrence: None)
  Receive Date: 20120725
  Receipt Date: 20120712
  Transmission Date: 20120928
  Serious: Yes (Other)
  Sender: FDA-Public Use
  Company Number: DE-FRI-1000023199

PATIENT
  Sex: Male
  Weight: 82 kg

DRUGS (5)
  1. LEVOTHYROXINE SODIUM [Concomitant]
     Indication: HYPOTHYROIDISM
     Dosage: 175 MG
     Route: 048
     Dates: start: 19940101
  2. NEBIVOLOL [Suspect]
     Dosage: 1.25 MG
     Route: 048
     Dates: start: 20111030, end: 20111202
  3. NEBIVOLOL [Suspect]
     Indication: HYPERTENSION
     Dosage: 5 MG
     Route: 048
     Dates: start: 20110801, end: 20111029
  4. ONBREZ [Concomitant]
     Indication: CHRONIC OBSTRUCTIVE PULMONARY DISEASE
     Route: 048
     Dates: start: 20090401
  5. MARCUMAR [Concomitant]
     Indication: AORTIC VALVE REPLACEMENT
     Dosage: 1.25 TABLET EVERY 3RD DAY
     Route: 048
     Dates: start: 20111101

REACTIONS (5)
  - BURNING SENSATION [None]
  - INSOMNIA [None]
  - EXTRASYSTOLES [None]
  - ATRIAL FIBRILLATION [None]
  - BRADYCARDIA [None]
